FAERS Safety Report 7186608-1 (Version None)
Quarter: 2010Q4

REPORT INFORMATION
  Report Type: 
  Country: None (occurrence: None)
  Receive Date: 20101222
  Receipt Date: 20101217
  Transmission Date: 20110411
  Serious: Yes (Hospitalization)
  Sender: FDA-Public Use
  Company Number: FR-PFIZER INC-2010174504

PATIENT
  Age: 85 Year
  Sex: Female

DRUGS (3)
  1. ALDACTONE [Suspect]
     Dosage: 1 DF, 1X/DAY
     Route: 048
     Dates: start: 20040101, end: 20101101
  2. PANTOPRAZOLE [Suspect]
     Dosage: 1 DF, 1X/DAY
     Route: 048
  3. SEROPRAM [Suspect]
     Dosage: UNK
     Route: 048

REACTIONS (2)
  - EOSINOPHILIA [None]
  - PEMPHIGOID [None]
